FAERS Safety Report 6847604-4 (Version None)
Quarter: 2010Q3

REPORT INFORMATION
  Report Type: 
  Country: None (occurrence: None)
  Receive Date: 20100716
  Receipt Date: 20100622
  Transmission Date: 20110219
  Serious: Yes (Other)
  Sender: FDA-Public Use
  Company Number: US-ASTRAZENECA-2010SE25452

PATIENT
  Age: 54 Year
  Sex: Male
  Weight: 90.7 kg

DRUGS (17)
  1. SEROQUEL [Suspect]
     Indication: BIPOLAR DISORDER
     Route: 048
     Dates: start: 20010101, end: 20080101
  2. SEROQUEL [Suspect]
     Route: 048
     Dates: start: 20080101
  3. SEROQUEL [Suspect]
     Route: 048
  4. UROSET K [Concomitant]
     Indication: NEPHROLITHIASIS
  5. CLONAZEPAM [Concomitant]
     Indication: NERVOUSNESS
     Dosage: UNKNOWN DOSE TWO TIMES A DAY
  6. LITHIUM [Concomitant]
  7. NEURONTIN [Concomitant]
  8. AVAPRO [Concomitant]
     Indication: HYPERTENSION
  9. ALLOPURINOL [Concomitant]
  10. FLURAZEPAM [Concomitant]
     Indication: SLEEP DISORDER
  11. ASPIRIN [Concomitant]
  12. PERCOCET [Concomitant]
     Indication: BACK PAIN
  13. PERCOCET [Concomitant]
     Indication: NEPHROLITHIASIS
  14. PROMETHAZINE [Concomitant]
     Indication: DYSPEPSIA
  15. CALCIUM [Concomitant]
  16. FLAX SEED OIL [Concomitant]
  17. ANTIHYPERTENSIVES [Concomitant]

REACTIONS (12)
  - ANAEMIA [None]
  - ANGER [None]
  - ANTIPSYCHOTIC DRUG LEVEL INCREASED [None]
  - BACK PAIN [None]
  - BLOOD GLUCOSE INCREASED [None]
  - DRUG DOSE OMISSION [None]
  - INTERVERTEBRAL DISC DISORDER [None]
  - OROPHARYNGEAL PAIN [None]
  - PROSTATE CANCER [None]
  - SOMNOLENCE [None]
  - THYROID DISORDER [None]
  - TOOTH DISORDER [None]
